FAERS Safety Report 11114884 (Version 2)
Quarter: 2015Q2

REPORT INFORMATION
  Report Type: Report from Study
  Country: CN (occurrence: CN)
  Receive Date: 20150515
  Receipt Date: 20150527
  Transmission Date: 20150821
  Serious: No
  Sender: FDA-Public Use
  Company Number: CN-BAYER-2014-135989

PATIENT
  Age: 56 Year
  Sex: Male

DRUGS (2)
  1. NEXAVAR [Suspect]
     Active Substance: SORAFENIB
     Indication: HEPATIC CANCER STAGE IV
     Dosage: 400 MG, BID
     Dates: start: 20140829
  2. NEXAVAR [Suspect]
     Active Substance: SORAFENIB
     Indication: METASTASES TO LUNG

REACTIONS (10)
  - Erythema [None]
  - Diarrhoea [Recovered/Resolved]
  - Platelet count decreased [None]
  - Oropharyngeal pain [None]
  - Diarrhoea [Recovering/Resolving]
  - Visual acuity reduced [None]
  - Palmar-plantar erythrodysaesthesia syndrome [None]
  - Pain of skin [None]
  - Pyrexia [Recovered/Resolved]
  - Diarrhoea [Recovering/Resolving]

NARRATIVE: CASE EVENT DATE: 2014
